FAERS Safety Report 13357058 (Version 1)
Quarter: 2017Q1

REPORT INFORMATION
  Report Type: Spontaneous
  Country: CA (occurrence: CA)
  Receive Date: 20170322
  Receipt Date: 20170322
  Transmission Date: 20170429
  Serious: Yes (Other)
  Sender: FDA-Public Use
  Company Number: CA-CONCORDIA PHARMACEUTICALS INC.-E2B_00008073

PATIENT
  Sex: Female

DRUGS (8)
  1. ENBREL [Concomitant]
     Active Substance: ETANERCEPT
     Dates: start: 200705, end: 200903
  2. ORENCIA [Concomitant]
     Active Substance: ABATACEPT
     Dates: start: 200903, end: 201301
  3. PLAQUENIL [Suspect]
     Active Substance: HYDROXYCHLOROQUINE SULFATE
     Indication: RHEUMATOID ARTHRITIS
     Route: 065
     Dates: start: 2000
  4. ACTEMRA [Concomitant]
     Active Substance: TOCILIZUMAB
     Indication: URINARY TRACT INFECTION
  5. ACTEMRA [Concomitant]
     Active Substance: TOCILIZUMAB
     Indication: NEUTROPENIA
     Dates: start: 201301, end: 201402
  6. METHOTREXATE. [Suspect]
     Active Substance: METHOTREXATE
     Indication: RHEUMATOID ARTHRITIS
     Route: 058
     Dates: start: 2000
  7. XELJANZ [Concomitant]
     Active Substance: TOFACITINIB CITRATE
     Indication: RHEUMATOID ARTHRITIS
     Dates: start: 20150416
  8. HUMIRA [Concomitant]
     Active Substance: ADALIMUMAB
     Dates: start: 200701, end: 200705

REACTIONS (10)
  - Arthralgia [Unknown]
  - Musculoskeletal pain [Unknown]
  - Headache [Recovering/Resolving]
  - Osteoarthritis [Unknown]
  - Gait disturbance [Recovering/Resolving]
  - Rheumatoid arthritis [Recovering/Resolving]
  - Nausea [Recovering/Resolving]
  - Influenza like illness [Recovering/Resolving]
  - Weight fluctuation [Unknown]
  - Musculoskeletal stiffness [Unknown]
